FAERS Safety Report 14351297 (Version 3)
Quarter: 2018Q2

REPORT INFORMATION
  Report Type: Report from Study
  Country: US (occurrence: US)
  Receive Date: 20180104
  Receipt Date: 20180427
  Transmission Date: 20180711
  Serious: Yes (Death, Hospitalization, Other)
  Sender: FDA-Public Use
  Company Number: US-RETROPHIN, INC.-2017RTN00127

PATIENT
  Age: 2 Year
  Sex: Male
  Weight: 10 kg

DRUGS (4)
  1. PEDIASURE PEPTIDE [Concomitant]
  2. CHOLIC ACID [Suspect]
     Active Substance: CHOLIC ACID
     Indication: CEREBROHEPATORENAL SYNDROME
     Dosage: 50 MG, 2X/DAY
     Dates: start: 20171105
  3. CHOLIC ACID [Suspect]
     Active Substance: CHOLIC ACID
     Dosage: 150 MG, AS DIRECTED
     Dates: end: 201804
  4. AQUADEKS [Concomitant]
     Active Substance: MINERALS\VITAMINS
     Dosage: 2 ML, 1X/DAY

REACTIONS (16)
  - Anaesthetic complication [Recovering/Resolving]
  - Haematemesis [Not Recovered/Not Resolved]
  - Blood bilirubin increased [Unknown]
  - Aspartate aminotransferase increased [Unknown]
  - Haemorrhage [Fatal]
  - Gastrostomy [Unknown]
  - International normalised ratio increased [Unknown]
  - Platelet count decreased [Unknown]
  - Feeding disorder [Not Recovered/Not Resolved]
  - Malaise [Recovered/Resolved]
  - Epistaxis [Unknown]
  - Contusion [Unknown]
  - Haematochezia [Not Recovered/Not Resolved]
  - Alanine aminotransferase increased [Unknown]
  - Gingival bleeding [Unknown]
  - Cholelithiasis [Unknown]

NARRATIVE: CASE EVENT DATE: 201712
